FAERS Safety Report 5311570-3 (Version None)
Quarter: 2007Q2

REPORT INFORMATION
  Report Type: 
  Country: None (occurrence: None)
  Receive Date: 20070430
  Receipt Date: 20070418
  Transmission Date: 20071010
  Serious: Yes (Life-Threatening, Hospitalization)
  Sender: FDA-Public Use
  Company Number: NO-ROCHE-379975

PATIENT
  Age: 51 Year
  Sex: Male

DRUGS (35)
  1. DACLIZUMAB [Suspect]
     Route: 042
     Dates: start: 20040611
  2. DACLIZUMAB [Suspect]
     Route: 042
     Dates: start: 20040618
  3. MYCOPHENOLATE MOFETIL [Suspect]
     Route: 042
     Dates: start: 20040610, end: 20040614
  4. MYCOPHENOLATE MOFETIL [Suspect]
     Route: 048
     Dates: start: 20040615, end: 20041216
  5. MYCOPHENOLATE MOFETIL [Suspect]
     Route: 048
     Dates: start: 20041217, end: 20050309
  6. TACROLIMUS [Suspect]
     Dosage: ADJUSTMENT TO REACH PREDEFINED TARGET LEVELS
     Route: 048
     Dates: start: 20040615, end: 20050615
  7. METHYLPREDNISOLONE 16MG TAB [Suspect]
     Route: 065
     Dates: start: 20040610, end: 20040613
  8. PREDNISOLONE [Suspect]
     Dosage: TAPERED ACCORDING TO LOCAL PROTOCOL
     Route: 065
     Dates: start: 20040614, end: 20040815
  9. PREDNISOLONE [Suspect]
     Dosage: ADVERSE EVENT/TOXICITY
     Route: 065
     Dates: start: 20040816, end: 20050615
  10. BACTRIM [Concomitant]
     Route: 065
     Dates: start: 20040612, end: 20041217
  11. MEROPENEM [Concomitant]
     Indication: INFECTION PROPHYLAXIS
     Dates: start: 20040610, end: 20040811
  12. FLUNITRAZEPAM [Concomitant]
     Route: 065
     Dates: start: 20040616, end: 20040628
  13. DALTEPARIN SODIUM [Concomitant]
     Indication: THROMBOSIS PROPHYLAXIS
     Dates: start: 20040611, end: 20040816
  14. INSULIN [Concomitant]
     Indication: DIABETES MELLITUS
     Dates: start: 20030601
  15. PANTOPRAZOL [Concomitant]
     Dates: start: 20040611, end: 20040805
  16. PROMETAZIN [Concomitant]
     Dates: start: 20040614, end: 20040615
  17. PARACETAMOL [Concomitant]
     Indication: PAIN
     Dates: start: 20040614, end: 20040615
  18. AMPHOTERICIN B [Concomitant]
     Indication: ORAL FUNGAL INFECTION
     Dates: start: 20040620, end: 20040623
  19. FLUCONAZOLE [Concomitant]
     Indication: FUNGAL INFECTION
     Dates: start: 20040620, end: 20040915
  20. FUROSEMIDE [Concomitant]
     Dates: start: 20040622, end: 20040807
  21. ACETYLSALICYLIC ACID SRT [Concomitant]
     Indication: THROMBOSIS PROPHYLAXIS
     Dates: start: 20040623
  22. MIRTAZAPINE [Concomitant]
     Indication: SEDATION
     Dates: start: 20040629, end: 20050614
  23. CEFOTAXIM [Concomitant]
     Indication: INFECTION
     Dates: start: 20040705, end: 20040714
  24. METRONIDAZOLE [Concomitant]
     Indication: INFECTION
     Dates: start: 20040705, end: 20040706
  25. RANITIDINE HCL [Concomitant]
     Dates: start: 20040805, end: 20040915
  26. LEVOMEPROMAZIN [Concomitant]
     Dates: start: 20040614, end: 20040628
  27. OXAZEPAM [Concomitant]
     Dates: start: 20040705, end: 20040915
  28. ZOLPIDEM [Concomitant]
     Indication: SLEEP DISORDER
     Dates: start: 20040609, end: 20040614
  29. DIAZEPAM [Concomitant]
     Dates: start: 20040612, end: 20040615
  30. ADRENALINE [Concomitant]
     Indication: BLOOD PRESSURE
     Dates: start: 20040610, end: 20040610
  31. POTASSIUM ACETATE [Concomitant]
     Indication: BLOOD POTASSIUM
     Dates: start: 20040610, end: 20040610
  32. MIDAZOLAM HCL [Concomitant]
     Indication: SEDATIVE THERAPY
     Dates: start: 20040610, end: 20040611
  33. KETOBEMIDON [Concomitant]
     Dates: start: 20040612, end: 20040808
  34. ALIMEMAZIN [Concomitant]
     Dates: start: 20040613, end: 20040613
  35. PROPOFOL [Concomitant]
     Indication: SEDATIVE THERAPY
     Dates: start: 20040612, end: 20040612

REACTIONS (3)
  - ENTEROCOCCAL INFECTION [None]
  - PERITONITIS [None]
  - POST PROCEDURAL BILE LEAK [None]
